FAERS Safety Report 23999883 (Version 3)
Quarter: 2024Q3

REPORT INFORMATION
  Report Type: Spontaneous
  Country: PL (occurrence: PL)
  Receive Date: 20240621
  Receipt Date: 20240724
  Transmission Date: 20241016
  Serious: Yes (Hospitalization, Other)
  Sender: PFIZER
  Company Number: PL-GEN-2024-2123

PATIENT
  Age: 67 Year
  Sex: Female

DRUGS (7)
  1. LINEZOLID [Interacting]
     Active Substance: LINEZOLID
     Indication: Pneumonia
     Dosage: 600 MG, 2X/DAY
     Route: 042
  2. SERTRALINE [Interacting]
     Active Substance: SERTRALINE HYDROCHLORIDE
     Indication: Insomnia
     Dosage: 100 MG, DAILY
  3. PERAZINE [Interacting]
     Active Substance: PERAZINE
     Indication: Insomnia
     Dosage: 50 MG, 1X/DAY (AT NIGHT)
  4. FENOTEROL HYDROBROMIDE\IPRATROPIUM BROMIDE [Concomitant]
     Active Substance: FENOTEROL HYDROBROMIDE\IPRATROPIUM BROMIDE
     Dosage: UNK
  5. CEFTRIAXONE [Concomitant]
     Active Substance: CEFTRIAXONE\CEFTRIAXONE SODIUM
     Indication: Pneumonia
     Dosage: 1 G, 2X/DAY
     Route: 042
  6. ERDOSTEINE [Concomitant]
     Active Substance: ERDOSTEINE
     Dosage: UNK
  7. AMLODIPINE\PERINDOPRIL [Concomitant]
     Active Substance: AMLODIPINE\PERINDOPRIL
     Indication: Hypertension
     Dosage: UNK

REACTIONS (2)
  - Serotonin syndrome [Recovered/Resolved]
  - Labelled drug-drug interaction medication error [Unknown]
